FAERS Safety Report 11403104 (Version 1)
Quarter: 2015Q3

REPORT INFORMATION
  Report Type: Spontaneous
  Country: US (occurrence: US)
  Receive Date: 20150821
  Receipt Date: 20150821
  Transmission Date: 20151125
  Serious: No
  Sender: FDA-Public Use
  Company Number: US-ROCHE-1305393

PATIENT
  Age: 39 Year
  Sex: Female

DRUGS (2)
  1. PEGASYS [Suspect]
     Active Substance: PEGINTERFERON ALFA-2A
     Indication: CHRONIC HEPATITIS C
     Route: 058
     Dates: start: 20130121, end: 20130701
  2. COPEGUS [Suspect]
     Active Substance: RIBAVIRIN
     Indication: CHRONIC HEPATITIS C
     Route: 048
     Dates: start: 20130121, end: 20130701

REACTIONS (11)
  - Breast mass [Unknown]
  - Fatigue [Unknown]
  - Costochondritis [Unknown]
  - Neck pain [Unknown]
  - Bronchitis [Unknown]
  - Pneumonia [Unknown]
  - Malaise [Unknown]
  - Memory impairment [Unknown]
  - Vertigo [Unknown]
  - Weight decreased [Unknown]
  - Back pain [Unknown]

NARRATIVE: CASE EVENT DATE: 201308
